FAERS Safety Report 9137743 (Version 5)
Quarter: 2014Q1

REPORT INFORMATION
  Report Type: Report from Study
  Country: JP (occurrence: JP)
  Receive Date: 20130304
  Receipt Date: 20140206
  Transmission Date: 20141002
  Serious: Yes (Hospitalization)
  Sender: FDA-Public Use
  Company Number: PHHO2009JP04210

PATIENT
  Age: 48 Year
  Sex: Female
  Weight: 51 kg

DRUGS (4)
  1. FTY 720 [Suspect]
     Indication: MULTIPLE SCLEROSIS
     Dosage: DOSE BLINDED
     Route: 048
     Dates: start: 20080904, end: 20090318
  2. ALOSENN [Concomitant]
     Indication: CONSTIPATION
  3. MAGNESIUM OXIDE [Concomitant]
     Indication: CONSTIPATION
  4. LANSOPRAZOLE [Concomitant]
     Indication: ABDOMINAL PAIN UPPER

REACTIONS (17)
  - Encephalopathy [Recovered/Resolved with Sequelae]
  - Headache [Recovering/Resolving]
  - Altered state of consciousness [Recovering/Resolving]
  - Cerebral disorder [Recovering/Resolving]
  - Aphasia [Recovering/Resolving]
  - Hemisensory neglect [Recovering/Resolving]
  - Apraxia [Recovering/Resolving]
  - Amnesia [Recovering/Resolving]
  - Hemiparesis [Recovering/Resolving]
  - Movement disorder [Recovering/Resolving]
  - Agnosia [Recovering/Resolving]
  - Speech disorder [Recovering/Resolving]
  - Electroencephalogram abnormal [Recovering/Resolving]
  - Central nervous system lesion [Recovering/Resolving]
  - Brain compression [Recovering/Resolving]
  - Brain oedema [Recovering/Resolving]
  - Delirium [Recovering/Resolving]
